FAERS Safety Report 9674730 (Version 1)
Quarter: 2013Q4

REPORT INFORMATION
  Report Type: Spontaneous
  Country: US (occurrence: US)
  Receive Date: 20131107
  Receipt Date: 20131107
  Transmission Date: 20140711
  Serious: No
  Sender: FDA-Public Use
  Company Number: US-ENDO PHARMACEUTICALS INC.-HCDA20120106

PATIENT
  Age: 57 Year
  Sex: Male
  Weight: 90.8 kg

DRUGS (1)
  1. HYDROCODONE/ACETAMINOPHEN 10MG/325MG [Suspect]
     Indication: PAIN
     Dosage: 10/325
     Route: 048
     Dates: start: 201211

REACTIONS (4)
  - Headache [Not Recovered/Not Resolved]
  - Dry throat [Not Recovered/Not Resolved]
  - Cough [Not Recovered/Not Resolved]
  - Drug ineffective [Not Recovered/Not Resolved]
